FAERS Safety Report 19157831 (Version 1)
Quarter: 2021Q2

REPORT INFORMATION
  Report Type: Other
  Country: US (occurrence: US)
  Receive Date: 20210420
  Receipt Date: 20210420
  Transmission Date: 20210717
  Serious: Yes (Hospitalization)
  Sender: FDA-Public Use
  Company Number: US-ROCHE-2808813

PATIENT

DRUGS (1)
  1. OBINUTUZUMAB. [Suspect]
     Active Substance: OBINUTUZUMAB
     Indication: GLOMERULONEPHRITIS MEMBRANOUS
     Route: 042

REACTIONS (2)
  - Urinary tract infection [Unknown]
  - Clostridium difficile infection [Unknown]
